FAERS Safety Report 20878319 (Version 4)
Quarter: 2023Q4

REPORT INFORMATION
  Report Type: Report from Study
  Country: JP (occurrence: JP)
  Receive Date: 20220526
  Receipt Date: 20231016
  Transmission Date: 20240110
  Serious: Yes (Other)
  Sender: FDA-Public Use
  Company Number: JP-VIIV HEALTHCARE LIMITED-JP2016JPN098335

PATIENT

DRUGS (9)
  1. DOLUTEGRAVIR [Suspect]
     Active Substance: DOLUTEGRAVIR
     Indication: HIV infection
     Dosage: 50 MG, 1D
     Route: 048
     Dates: start: 20140802
  2. DESCOVY [Suspect]
     Active Substance: EMTRICITABINE\TENOFOVIR ALAFENAMIDE FUMARATE
     Indication: HIV infection
     Dosage: 1 DF, 1D
     Route: 048
     Dates: start: 20170324
  3. TRUVADA [Concomitant]
     Active Substance: EMTRICITABINE\TENOFOVIR DISOPROXIL FUMARATE
     Indication: HIV infection
     Dosage: 1 DF
     Dates: start: 20130405, end: 20170323
  4. SAWACILLIN CAPSULES 250 [Concomitant]
     Dosage: UNK
     Dates: start: 20170623, end: 20170720
  5. SAWACILLIN CAPSULES 250 [Concomitant]
     Dosage: UNK
     Dates: start: 20220411, end: 20220424
  6. SAWACILLIN CAPSULES 250 [Concomitant]
     Dosage: UNK
     Dates: start: 20230110, end: 20230123
  7. PROBENECID [Concomitant]
     Active Substance: PROBENECID
     Dosage: UNK
     Dates: start: 20170623, end: 20170720
  8. PROBENECID [Concomitant]
     Active Substance: PROBENECID
     Dosage: UNK
     Dates: start: 20220411, end: 20220424
  9. PROBENECID [Concomitant]
     Active Substance: PROBENECID
     Dosage: UNK
     Dates: start: 20230110, end: 20230123

REACTIONS (4)
  - Blood triglycerides increased [Recovered/Resolved]
  - Blood uric acid increased [Recovered/Resolved]
  - Syphilis [Recovering/Resolving]
  - Syphilis [Recovering/Resolving]

NARRATIVE: CASE EVENT DATE: 20150529
